FAERS Safety Report 11781722 (Version 1)
Quarter: 2015Q4

REPORT INFORMATION
  Report Type: Other
  Country: DE (occurrence: DE)
  Receive Date: 20151126
  Receipt Date: 20151126
  Transmission Date: 20160305
  Serious: Yes (Congenital Anomaly)
  Sender: FDA-Public Use
  Company Number: DE-LABORATOIRE HRA PHARMA-1044693

PATIENT
  Sex: Female

DRUGS (1)
  1. ELLA [Suspect]
     Active Substance: ULIPRISTAL ACETATE
     Route: 048
     Dates: start: 20140908, end: 20140908

REACTIONS (2)
  - Lissencephaly [Unknown]
  - Microcephaly [Unknown]
